FAERS Safety Report 7713248-5 (Version None)
Quarter: 2011Q3

REPORT INFORMATION
  Report Type: 
  Country: None (occurrence: None)
  Receive Date: 20110826
  Receipt Date: 20110812
  Transmission Date: 20111222
  Serious: Yes (Other)
  Sender: FDA-Public Use
  Company Number: US-BAYER-2011-073562

PATIENT
  Age: 24 Year
  Sex: Female
  Weight: 122 kg

DRUGS (1)
  1. ALEVE-D SINUS + COLD [Suspect]
     Indication: PRODUCT USED FOR UNKNOWN INDICATION
     Dosage: COUNT SIZE 20S
     Route: 048
     Dates: start: 20110812

REACTIONS (1)
  - UNRESPONSIVE TO STIMULI [None]
